FAERS Safety Report 13302638 (Version 1)
Quarter: 2017Q1

REPORT INFORMATION
  Report Type: Spontaneous
  Country: US (occurrence: US)
  Receive Date: 20170307
  Receipt Date: 20170307
  Transmission Date: 20170428
  Serious: No
  Sender: FDA-Public Use
  Company Number: US-EMD SERONO-8146003

PATIENT
  Sex: Female
  Weight: 10 kg

DRUGS (3)
  1. SAIZEN [Suspect]
     Active Substance: SOMATROPIN
     Indication: DEVELOPMENTAL DELAY
  2. SAIZEN [Suspect]
     Active Substance: SOMATROPIN
     Indication: BODY HEIGHT BELOW NORMAL
     Route: 058
  3. SAIZEN [Suspect]
     Active Substance: SOMATROPIN
     Indication: PRADER-WILLI SYNDROME

REACTIONS (7)
  - Drug dose omission [Unknown]
  - Device issue [Unknown]
  - Joint dislocation [Unknown]
  - Carnitine deficiency [Unknown]
  - Haemangioma of skin [Unknown]
  - Dysphagia [Unknown]
  - Scoliosis [Unknown]
